FAERS Safety Report 14498779 (Version 1)
Quarter: 2018Q1

REPORT INFORMATION
  Report Type: Spontaneous
  Country: GB (occurrence: GB)
  Receive Date: 20180207
  Receipt Date: 20180207
  Transmission Date: 20180509
  Serious: Yes (Hospitalization)
  Sender: FDA-Public Use
  Company Number: GB-TEVA-2018-GB-854751

PATIENT
  Age: 57 Year
  Sex: Male

DRUGS (16)
  1. LANSOPRAZOLE. [Concomitant]
     Active Substance: LANSOPRAZOLE
     Dosage: 50 MILLIGRAM DAILY; IN THE MORNING
     Route: 048
  2. BISOPROLOL [Concomitant]
     Active Substance: BISOPROLOL
     Dosage: 10 MILLIGRAM DAILY; IN THE MORNING
     Route: 048
  3. TACROLIMUS. [Interacting]
     Active Substance: TACROLIMUS
     Indication: RENAL TRANSPLANT
     Dosage: 5 MILLIGRAM DAILY;
     Route: 048
  4. SODIUM HYDROGEN CARBONATE [Concomitant]
     Active Substance: SODIUM BICARBONATE
     Dosage: 4.5 MILLIGRAM DAILY;
     Route: 050
  5. DIGOXIN. [Interacting]
     Active Substance: DIGOXIN
     Route: 065
  6. PREDNISOLONE. [Concomitant]
     Active Substance: PREDNISOLONE
     Dosage: 7.5 MILLIGRAM DAILY; IN THE MORNING
     Route: 048
  7. ACETYLSALICYLIC ACID [Concomitant]
     Active Substance: ASPIRIN
     Dosage: 75 MILLIGRAM DAILY; IN THE MORNING
     Route: 048
  8. LINAGLIPTIN [Concomitant]
     Active Substance: LINAGLIPTIN
     Dosage: 5 MILLIGRAM DAILY; IN THE MORNING
     Route: 048
  9. MULTIVITAMIN [Concomitant]
     Active Substance: VITAMINS
     Dosage: 1 MILLIGRAM DAILY; IN THE MORNING
     Route: 048
  10. LEVOTHYROXINE. [Concomitant]
     Active Substance: LEVOTHYROXINE
     Dosage: 50 MILLIGRAM DAILY; IN THE MORNING
     Route: 048
  11. THIAMINE. [Interacting]
     Active Substance: THIAMINE
     Dosage: 200 MILLIGRAM DAILY;
     Route: 048
  12. FUROSEMIDE. [Concomitant]
     Active Substance: FUROSEMIDE
     Dosage: 160 MILLIGRAM DAILY;
     Route: 048
  13. WARFARIN [Concomitant]
     Active Substance: WARFARIN
     Route: 048
  14. CLARITHROMYCIN. [Suspect]
     Active Substance: CLARITHROMYCIN
     Indication: DIABETIC FOOT
     Route: 048
  15. FEBUXOSTAT. [Concomitant]
     Active Substance: FEBUXOSTAT
     Dosage: 80 MILLIGRAM DAILY; IN THE MORNING
     Route: 048
  16. PYRIDOXINE [Concomitant]
     Active Substance: PYRIDOXINE
     Dosage: 50 MILLIGRAM DAILY; IN THE MORNING
     Route: 048

REACTIONS (3)
  - Acute kidney injury [Recovered/Resolved]
  - Toxicity to various agents [Recovered/Resolved]
  - Drug interaction [Recovered/Resolved]
